FAERS Safety Report 20576014 (Version 3)
Quarter: 2022Q2

REPORT INFORMATION
  Report Type: Spontaneous
  Country: US (occurrence: US)
  Receive Date: 20220310
  Receipt Date: 20220414
  Transmission Date: 20220720
  Serious: Yes (Other)
  Sender: FDA-Public Use
  Company Number: US-CELLTRION INC.-2022US001500

PATIENT

DRUGS (6)
  1. TRUXIMA [Suspect]
     Active Substance: RITUXIMAB-ABBS
     Indication: Systemic lupus erythematosus
     Dosage: 1000 MG DAY 1 AND DAY 14 OF EACH CYCLE AND REPEATS THE CYCLE EVERY 4-6 MONTHS
     Route: 042
     Dates: start: 20220223
  2. PLAQUENIL [Concomitant]
     Active Substance: HYDROXYCHLOROQUINE SULFATE
  3. MYCOPHENOLIC ACID [Concomitant]
     Active Substance: MYCOPHENOLIC ACID
  4. OLANZAPINE [Concomitant]
     Active Substance: OLANZAPINE
  5. ARIPIPRAZOLE [Concomitant]
     Active Substance: ARIPIPRAZOLE
  6. TOPIRAMATE [Concomitant]
     Active Substance: TOPIRAMATE

REACTIONS (3)
  - Systemic lupus erythematosus [Unknown]
  - Pruritus [Recovered/Resolved]
  - Off label use [Unknown]

NARRATIVE: CASE EVENT DATE: 20220223
